FAERS Safety Report 10033927 (Version 1)
Quarter: 2014Q1

REPORT INFORMATION
  Report Type: Report from Study
  Country: US (occurrence: US)
  Receive Date: 20140325
  Receipt Date: 20140325
  Transmission Date: 20141002
  Serious: Yes (Other)
  Sender: FDA-Public Use
  Company Number: US-ALEXION-A201002197

PATIENT
  Sex: Male

DRUGS (3)
  1. SOLIRIS [Suspect]
  2. BABY ASPIRIN [Concomitant]
  3. EXJADE [Concomitant]
     Dosage: 1500 MG

REACTIONS (2)
  - Transfusion [Unknown]
  - Arthritis [Unknown]
